FAERS Safety Report 7219718-0 (Version None)
Quarter: 2011Q1

REPORT INFORMATION
  Report Type: 
  Country: None (occurrence: None)
  Receive Date: 20110111
  Receipt Date: 20110106
  Transmission Date: 20110831
  Serious: Yes (Death)
  Sender: FDA-Public Use
  Company Number: PHHY2011MX01080

PATIENT
  Age: 40 Year
  Sex: Male

DRUGS (7)
  1. AZATHIOPRINE [Concomitant]
  2. ACYCLOVIR [Concomitant]
  3. CYCLOSPORINE [Suspect]
     Indication: RENAL TRANSPLANT
  4. CEFUROXIME [Concomitant]
  5. SULFAMETHOXAZOLE AND TRIMETHOPRIM [Concomitant]
     Dosage: 1 DF, QD
  6. MYCOPHENOLATE MOFETIL [Concomitant]
  7. PREDNISONE [Concomitant]

REACTIONS (4)
  - SEPSIS [None]
  - ESCHERICHIA INFECTION [None]
  - ENTEROCOCCAL INFECTION [None]
  - CLOSTRIDIAL INFECTION [None]
